FAERS Safety Report 13293025 (Version 3)
Quarter: 2017Q2

REPORT INFORMATION
  Report Type: Spontaneous
  Country: US (occurrence: US)
  Receive Date: 20170303
  Receipt Date: 20170602
  Transmission Date: 20170830
  Serious: Yes (Hospitalization)
  Sender: FDA-Public Use
  Company Number: US-JNJFOC-20170103248

PATIENT
  Age: 49 Year
  Sex: Female

DRUGS (1)
  1. XARELTO [Suspect]
     Active Substance: RIVAROXABAN
     Indication: DEEP VEIN THROMBOSIS
     Route: 048
     Dates: start: 20151216, end: 20160101

REACTIONS (11)
  - Peritoneal haemorrhage [Unknown]
  - Gastrointestinal haemorrhage [Unknown]
  - Urinary retention [Unknown]
  - Shock haemorrhagic [Unknown]
  - Intentional self-injury [Unknown]
  - Splenic haematoma [Unknown]
  - Anxiety [Unknown]
  - Splenic rupture [Recovering/Resolving]
  - Haematuria [Unknown]
  - Depression [Unknown]
  - Intentional overdose [Unknown]

NARRATIVE: CASE EVENT DATE: 201512
